FAERS Safety Report 15362775 (Version 1)
Quarter: 2018Q3

REPORT INFORMATION
  Report Type: Report from Study
  Country: DE (occurrence: DE)
  Receive Date: 20180907
  Receipt Date: 20180907
  Transmission Date: 20181010
  Serious: Yes (Congenital Anomaly)
  Sender: FDA-Public Use
  Company Number: DE-CASPER PHARMA LLC-2018CAS000103

PATIENT
  Sex: Male

DRUGS (4)
  1. ALLOPURINOL. [Suspect]
     Active Substance: ALLOPURINOL
     Route: 064
  2. SODIUM CARBONATE [Concomitant]
     Active Substance: SODIUM CARBONATE
     Route: 064
  3. PYRIDOXIN [Concomitant]
     Active Substance: PYRIDOXINE
     Route: 064
  4. HYDROCHLOROTHIAZIDE. [Concomitant]
     Active Substance: HYDROCHLOROTHIAZIDE
     Route: 064

REACTIONS (10)
  - Cryptorchism [Unknown]
  - Micropenis [Unknown]
  - Conductive deafness [Unknown]
  - Hepatosplenomegaly [Unknown]
  - Cleft lip and palate [Unknown]
  - Low set ears [Unknown]
  - Renal hypoplasia [Unknown]
  - Foetal exposure during pregnancy [Unknown]
  - Retrognathia [Unknown]
  - Microphthalmos [Unknown]
